FAERS Safety Report 11837354 (Version 2)
Quarter: 2015Q4

REPORT INFORMATION
  Report Type: Spontaneous
  Country: US (occurrence: US)
  Receive Date: 20151215
  Receipt Date: 20151224
  Transmission Date: 20160305
  Serious: Yes (Death)
  Sender: FDA-Public Use
  Company Number: US-INSYS THERAPEUTICS, INC-INS201512-000527

PATIENT
  Sex: Male
  Weight: 63.95 kg

DRUGS (12)
  1. LOFEXIDINE [Concomitant]
  2. FENOFIBRATE. [Concomitant]
     Active Substance: FENOFIBRATE
  3. ALBUTEROL SULPHATE [Concomitant]
     Active Substance: ALBUTEROL
  4. IBUPROFEN. [Concomitant]
     Active Substance: IBUPROFEN
  5. SUBSYS [Suspect]
     Active Substance: FENTANYL
     Indication: BREAKTHROUGH PAIN
     Dates: start: 20150505
  6. TEMAZEPAM. [Concomitant]
     Active Substance: TEMAZEPAM
  7. PERCOCET [Concomitant]
     Active Substance: ACETAMINOPHEN\OXYCODONE HYDROCHLORIDE
  8. PANTOPRAZOLE [Concomitant]
     Active Substance: PANTOPRAZOLE SODIUM
  9. ONDANSETRON [Concomitant]
     Active Substance: ONDANSETRON
  10. FOLIC ACID. [Concomitant]
     Active Substance: FOLIC ACID
  11. GABAPENTIN. [Concomitant]
     Active Substance: GABAPENTIN
  12. TIZANIDINE. [Concomitant]
     Active Substance: TIZANIDINE

REACTIONS (2)
  - Metastases to lymph nodes [Fatal]
  - Neoplasm progression [Fatal]
